FAERS Safety Report 6484442-9 (Version None)
Quarter: 2009Q4

REPORT INFORMATION
  Report Type: 
  Country: None (occurrence: None)
  Receive Date: 20091209
  Receipt Date: 20091125
  Transmission Date: 20100525
  Serious: Yes (Hospitalization, Other)
  Sender: FDA-Public Use
  Company Number: PHHY2009IE05594

PATIENT
  Sex: Male

DRUGS (6)
  1. CLOZARIL [Suspect]
     Indication: SCHIZOPHRENIA
     Dosage: 900 MG, QD
     Route: 048
     Dates: start: 20050301
  2. CLOZARIL [Suspect]
     Dosage: NO TREATMENT
  3. CLOZARIL [Suspect]
     Dosage: UNK
     Route: 048
  4. BENZYLPIPERAZINE [Suspect]
     Dosage: 3-4 TABLETS
     Route: 048
     Dates: start: 20090101, end: 20090201
  5. HALOPERIDOL [Concomitant]
     Indication: SCHIZOPHRENIA
     Dosage: 2.5 MG, BID
     Route: 048
     Dates: start: 20040901
  6. PROCYCLIDINE HYDROCHLORIDE 2MG TAB [Concomitant]
     Indication: PROPHYLAXIS
     Dosage: 5 MG DAILY
     Route: 048
     Dates: start: 20040901

REACTIONS (6)
  - ARACHNOID CYST [None]
  - DELIRIUM [None]
  - DISORIENTATION [None]
  - DRUG ABUSE [None]
  - INCOHERENT [None]
  - MENINGIOMA [None]
